FAERS Safety Report 7271313-3 (Version None)
Quarter: 2011Q1

REPORT INFORMATION
  Report Type: 
  Country: None (occurrence: None)
  Receive Date: 20110203
  Receipt Date: 20100831
  Transmission Date: 20110831
  Serious: Yes (Hospitalization, Other)
  Sender: FDA-Public Use
  Company Number: US-BIOGENIDEC-2009BI014030

PATIENT
  Age: 35 Year
  Sex: Female
  Weight: 108 kg

DRUGS (9)
  1. OMEPRAZOLE [Concomitant]
  2. NEURONTIN [Concomitant]
  3. AMITRIPTYLINE HCL [Concomitant]
  4. DIAZEPAM [Concomitant]
     Indication: MUSCLE SPASMS
  5. RAMIPRIL [Concomitant]
  6. PROZAC [Concomitant]
  7. VICODIN [Concomitant]
  8. TYSABRI [Suspect]
     Indication: MULTIPLE SCLEROSIS
     Route: 042
     Dates: start: 20070725, end: 20090506
  9. BACLOFEN [Concomitant]

REACTIONS (5)
  - IMMUNE RECONSTITUTION SYNDROME [None]
  - SUICIDE ATTEMPT [None]
  - PROGRESSIVE MULTIFOCAL LEUKOENCEPHALOPATHY [None]
  - LYMPHOCYTOSIS [None]
  - DEPRESSION [None]
